FAERS Safety Report 24200423 (Version 1)
Quarter: 2024Q3

REPORT INFORMATION
  Report Type: Spontaneous
  Country: CA (occurrence: CA)
  Receive Date: 20240812
  Receipt Date: 20240812
  Transmission Date: 20241016
  Serious: Yes (Other)
  Sender: TEVA
  Company Number: CA-TEVA-VS-3231122

PATIENT
  Age: 68 Year
  Sex: Female

DRUGS (9)
  1. VALACYCLOVIR [Suspect]
     Active Substance: VALACYCLOVIR HYDROCHLORIDE
     Indication: Product used for unknown indication
     Route: 065
  2. CALCIUM CARBONATE [Suspect]
     Active Substance: CALCIUM CARBONATE
     Indication: Product used for unknown indication
     Route: 065
  3. CRESEMBA [Suspect]
     Active Substance: ISAVUCONAZONIUM SULFATE
     Indication: Product used for unknown indication
     Route: 065
  4. LATANOPROST\TIMOLOL [Suspect]
     Active Substance: LATANOPROST\TIMOLOL
     Indication: Product used for unknown indication
     Dosage: DOSE FORM: SOLUTION OPHTHALMIC
     Route: 065
  5. VENTOLIN [Suspect]
     Active Substance: ALBUTEROL SULFATE
     Indication: Product used for unknown indication
     Route: 055
  6. PANTOPRAZOLE SODIUM ANHYDROUS [Suspect]
     Active Substance: PANTOPRAZOLE SODIUM ANHYDROUS
     Indication: Product used for unknown indication
     Route: 065
  7. ATOVAQUONE [Suspect]
     Active Substance: ATOVAQUONE
     Indication: Product used for unknown indication
     Dosage: DOSE FORM: SUSPENSION
     Route: 048
  8. FLUTICASONE FUROATE\UMECLIDINIUM BROMIDE\VILANTEROL TRIFENATATE [Suspect]
     Active Substance: FLUTICASONE FUROATE\UMECLIDINIUM BROMIDE\VILANTEROL TRIFENATATE
     Indication: Product used for unknown indication
     Route: 065
  9. CHOLECALCIFEROL [Suspect]
     Active Substance: CHOLECALCIFEROL
     Indication: Product used for unknown indication
     Route: 065

REACTIONS (1)
  - Febrile neutropenia [Unknown]
